FAERS Safety Report 8592371-X (Version None)
Quarter: 2012Q3

REPORT INFORMATION
  Report Type: 
  Country: None (occurrence: None)
  Receive Date: 20120814
  Receipt Date: 20120807
  Transmission Date: 20120928
  Serious: Yes (Hospitalization)
  Sender: FDA-Public Use
  Company Number: US-009507513-1207USA009272

PATIENT

DRUGS (1)
  1. COZAAR [Suspect]
     Indication: HYPERTENSION
     Route: 048

REACTIONS (3)
  - HEPATIC ENZYME INCREASED [None]
  - GAIT DISTURBANCE [None]
  - MYALGIA [None]
